FAERS Safety Report 5852599-6 (Version None)
Quarter: 2008Q3

REPORT INFORMATION
  Report Type: 
  Country: None (occurrence: None)
  Receive Date: 20080821
  Receipt Date: 20080812
  Transmission Date: 20090109
  Serious: Yes (Hospitalization, Congenital Anomaly)
  Sender: FDA-Public Use
  Company Number: A0683110A

PATIENT
  Sex: Male
  Weight: 2.5 kg

DRUGS (6)
  1. PAXIL [Suspect]
     Indication: ANXIETY
     Dates: start: 20020101
  2. PAROXETINE HCL [Suspect]
     Indication: ANXIETY
     Dates: start: 20040101
  3. VITAMIN TAB [Concomitant]
  4. INSULIN [Concomitant]
  5. FOLIC ACID [Concomitant]
  6. KETEK [Concomitant]
     Dates: start: 20040801

REACTIONS (6)
  - ATRIAL SEPTAL DEFECT [None]
  - CARDIAC DISORDER [None]
  - CONGENITAL CHOROID PLEXUS CYST [None]
  - DRUG EXPOSURE DURING PREGNANCY [None]
  - RESPIRATORY DISTRESS [None]
  - SUPRAVENTRICULAR TACHYCARDIA [None]
